FAERS Safety Report 4620272-8 (Version None)
Quarter: 2005Q1

REPORT INFORMATION
  Report Type: 
  Country: None (occurrence: None)
  Receive Date: 20050328
  Receipt Date: 20050316
  Transmission Date: 20050727
  Serious: Yes (Death)
  Sender: FDA-Public Use
  Company Number: US-AMGEN-US121053

PATIENT
  Sex: Female

DRUGS (5)
  1. NEULASTA [Suspect]
     Indication: CHEMOTHERAPY
     Dates: start: 20050307, end: 20050311
  2. CARBOPLATIN [Concomitant]
  3. ETOPOSIDE [Concomitant]
  4. TPN [Concomitant]
  5. ANTIBIOTICS [Concomitant]

REACTIONS (5)
  - ABDOMINAL PAIN UPPER [None]
  - BONE PAIN [None]
  - DEATH [None]
  - DYSPNOEA [None]
  - OVERDOSE [None]
